FAERS Safety Report 9383633 (Version 2)
Quarter: 2013Q3

REPORT INFORMATION
  Report Type: Spontaneous
  Country: CZ (occurrence: CZ)
  Receive Date: 20130704
  Receipt Date: 20130816
  Transmission Date: 20140515
  Serious: Yes (Hospitalization, Other)
  Sender: FDA-Public Use
  Company Number: CZ-PFIZER INC-2013179252

PATIENT
  Age: 77 Year
  Sex: Male

DRUGS (2)
  1. METRONIDAZOLE [Suspect]
     Indication: CLOSTRIDIUM COLITIS
     Dosage: UNK
  2. METRONIDAZOLE [Suspect]
     Dosage: UNK

REACTIONS (2)
  - Gastroenteritis [Not Recovered/Not Resolved]
  - Eosinophilia [Not Recovered/Not Resolved]
